FAERS Safety Report 8708941 (Version 2)
Quarter: 2012Q4

REPORT INFORMATION
  Report Type: 
  Country: US (occurrence: US)
  Receive Date: 20120806
  Receipt Date: 20121023
  Transmission Date: 20130627
  Serious: Yes (Death, Other)
  Sender: FDA-Public Use
  Company Number: US-ROCHE-1097070

PATIENT
  Sex: Female

DRUGS (15)
  1. XOLAIR [Suspect]
     Indication: ASTHMA
     Route: 065
  2. ALPRAZOLAM [Concomitant]
     Indication: ANXIETY
     Route: 048
     Dates: start: 20080803
  3. ASPIRIN [Concomitant]
     Route: 065
     Dates: start: 20080724
  4. CYCLOBENZAPRINE [Concomitant]
     Indication: MUSCLE SPASMS
     Route: 065
     Dates: start: 20080723
  5. DILTIAZEM [Concomitant]
     Indication: BLOOD PRESSURE
     Route: 065
     Dates: start: 20080729
  6. FLUTICASONE [Concomitant]
     Route: 065
     Dates: start: 20080723
  7. HYDRALAZINE [Concomitant]
     Indication: BLOOD PRESSURE
     Route: 065
     Dates: start: 20080726
  8. FOSAMAX [Concomitant]
     Route: 065
     Dates: start: 20080803
  9. FUROSEMIDE [Concomitant]
     Indication: OEDEMA
     Route: 048
     Dates: start: 20080727
  10. INSULIN GLARGINE [Concomitant]
     Indication: DIABETES MELLITUS
     Route: 065
     Dates: start: 20080726
  11. MONTELUKAST [Concomitant]
     Indication: ASTHMA
     Route: 065
     Dates: start: 20080729
  12. OS-CAL [Concomitant]
     Route: 065
     Dates: start: 20080723
  13. VICODIN [Concomitant]
     Indication: PAIN
     Route: 065
     Dates: start: 20080803
  14. RANITIDINE [Concomitant]
     Indication: DYSPEPSIA
     Route: 065
     Dates: start: 20080723
  15. PREDNISONE [Concomitant]
     Indication: ASTHMA
     Route: 065
     Dates: start: 20060731

REACTIONS (6)
  - Death [Fatal]
  - Asthma [Unknown]
  - Dyspnoea [Unknown]
  - Fall [Unknown]
  - Drug dose omission [Unknown]
  - Asthenia [Unknown]
